FAERS Safety Report 14026752 (Version 3)
Quarter: 2018Q3

REPORT INFORMATION
  Report Type: Report from Study
  Country: BR (occurrence: BR)
  Receive Date: 20170929
  Receipt Date: 20180814
  Transmission Date: 20181010
  Serious: Yes (Other)
  Sender: FDA-Public Use
  Company Number: BR-NOVEN PHARMACEUTICALS, INC.-BR2017000747

PATIENT

DRUGS (5)
  1. OMEPRAZOLE. [Concomitant]
     Active Substance: OMEPRAZOLE
     Dosage: UNK
  2. ESTRADIOL/NORETHISTERONE ACETATE [Suspect]
     Active Substance: ESTRADIOL\NORETHINDRONE ACETATE
     Indication: HORMONE REPLACEMENT THERAPY
     Dosage: 1 DF (1 PATCH A DAY 2 TIMES A WEEK), UNK
     Route: 062
  3. LEVOID [Concomitant]
     Active Substance: LEVOTHYROXINE
     Dosage: UNK
  4. ESTRADIOL/NORETHISTERONE ACETATE [Suspect]
     Active Substance: ESTRADIOL\NORETHINDRONE ACETATE
     Indication: MENOPAUSE
  5. DAFLON [Concomitant]
     Dosage: UNK

REACTIONS (15)
  - Blister [Recovering/Resolving]
  - Diabetes mellitus [Recovering/Resolving]
  - Pruritus [Recovering/Resolving]
  - Weight decreased [Recovering/Resolving]
  - Blood pressure increased [Recovering/Resolving]
  - Headache [Recovering/Resolving]
  - Vitamin D deficiency [Recovering/Resolving]
  - Sleep disorder [Recovering/Resolving]
  - Hypothyroidism [Recovering/Resolving]
  - Hypersensitivity [Not Recovered/Not Resolved]
  - Erythema [Recovering/Resolving]
  - Feeling hot [Recovering/Resolving]
  - Nervousness [Unknown]
  - Malaise [Recovering/Resolving]
  - Breast mass [Recovering/Resolving]

NARRATIVE: CASE EVENT DATE: 2016
